FAERS Safety Report 8392790-0 (Version None)
Quarter: 2012Q2

REPORT INFORMATION
  Report Type: 
  Country: None (occurrence: None)
  Receive Date: 20120529
  Receipt Date: 20111019
  Transmission Date: 20120825
  Serious: Yes (Other)
  Sender: FDA-Public Use
  Company Number: JP-PFIZER INC-2012127054

PATIENT
  Age: 69 Year
  Sex: Female

DRUGS (1)
  1. MIGLITOL [Suspect]
     Dosage: 150 MG DAILY
     Route: 048
     Dates: start: 20100604

REACTIONS (1)
  - OCULAR HYPERTENSION [None]
